FAERS Safety Report 17294251 (Version 1)
Quarter: 2020Q1

REPORT INFORMATION
  Report Type: Spontaneous
  Country: US (occurrence: US)
  Receive Date: 20200119
  Receipt Date: 20200119
  Transmission Date: 20200409
  Serious: Yes (Disabling)
  Sender: FDA-Public Use
  Company Number: None

PATIENT
  Age: 26 Year
  Sex: Female
  Weight: 61.23 kg

DRUGS (1)
  1. PARAGARD T 380A [Suspect]
     Active Substance: COPPER

REACTIONS (6)
  - Menorrhagia [None]
  - Complication associated with device [None]
  - Pelvic floor muscle weakness [None]
  - Back pain [None]
  - Loss of personal independence in daily activities [None]
  - Emotional distress [None]

NARRATIVE: CASE EVENT DATE: 20190301
